FAERS Safety Report 18713513 (Version 1)
Quarter: 2021Q1

REPORT INFORMATION
  Report Type: Spontaneous
  Country: US (occurrence: US)
  Receive Date: 20210107
  Receipt Date: 20210107
  Transmission Date: 20210419
  Serious: No
  Sender: FDA-Public Use
  Company Number: US-GLAXOSMITHKLINE-US2020257519

PATIENT
  Age: 49 Year
  Sex: Female

DRUGS (6)
  1. NICODERM CQ [Suspect]
     Active Substance: NICOTINE
     Indication: SMOKING CESSATION THERAPY
     Dosage: UNK
  2. NICODERM CQ [Suspect]
     Active Substance: NICOTINE
     Indication: SMOKING CESSATION THERAPY
     Dosage: UNK
     Dates: start: 202011
  3. NICODERM CQ [Suspect]
     Active Substance: NICOTINE
  4. NICODERM CQ [Suspect]
     Active Substance: NICOTINE
  5. NICODERM CQ [Suspect]
     Active Substance: NICOTINE
     Indication: SMOKING CESSATION THERAPY
     Dosage: UNK
  6. NICODERM CQ [Suspect]
     Active Substance: NICOTINE

REACTIONS (3)
  - Application site rash [Unknown]
  - Expired product administered [Unknown]
  - Allergic reaction to excipient [Unknown]
